FAERS Safety Report 9450940 (Version 2)
Quarter: 2013Q3

REPORT INFORMATION
  Report Type: Spontaneous
  Country: SG (occurrence: SG)
  Receive Date: 20130809
  Receipt Date: 20130905
  Transmission Date: 20140515
  Serious: Yes (Hospitalization, Other)
  Sender: FDA-Public Use
  Company Number: SG-MERCK-1307SGP016451

PATIENT
  Age: 85 Year
  Sex: Female

DRUGS (1)
  1. INVANZ [Suspect]
     Dosage: UNK
     Dates: start: 20130623

REACTIONS (2)
  - Complex partial seizures [Unknown]
  - Status epilepticus [Unknown]
